FAERS Safety Report 10067234 (Version 1)
Quarter: 2014Q2

REPORT INFORMATION
  Report Type: Spontaneous
  Country: US (occurrence: None)
  Receive Date: 20140407
  Receipt Date: 20140407
  Transmission Date: 20141212
  Serious: Yes (Hospitalization)
  Sender: FDA-Public Use
  Company Number: 1713747-2014-99941

PATIENT
  Age: 51 Year
  Sex: Male

DRUGS (4)
  1. DELFLEX [Suspect]
     Dosage: DAILY, PERITONEAL
  2. LIBERTY CYCLER CASSETTE [Concomitant]
  3. LIBERTY CYCLER [Concomitant]
  4. LANTUS [Concomitant]

REACTIONS (1)
  - Peritonitis [None]
